FAERS Safety Report 20373732 (Version 2)
Quarter: 2023Q1

REPORT INFORMATION
  Report Type: Report from Study
  Country: KR (occurrence: KR)
  Receive Date: 20220125
  Receipt Date: 20230319
  Transmission Date: 20230417
  Serious: Yes (Death, Hospitalization)
  Sender: FDA-Public Use
  Company Number: KR-ABBVIE-22K-090-4245819-00

PATIENT
  Age: 66 Year
  Sex: Female

DRUGS (1)
  1. HUMIRA [Suspect]
     Active Substance: ADALIMUMAB
     Indication: Rheumatoid arthritis
     Route: 058

REACTIONS (11)
  - Oxygen saturation decreased [Fatal]
  - Asthenia [Recovered/Resolved]
  - Altered state of consciousness [Recovered/Resolved]
  - Pyrexia [Recovered/Resolved]
  - Dyspnoea [Recovered/Resolved]
  - Neutropenia [Fatal]
  - Infection [Recovered/Resolved]
  - Pneumonia [Fatal]
  - Infection [Fatal]
  - Sepsis [Fatal]
  - Dyspnoea [Fatal]

NARRATIVE: CASE EVENT DATE: 20220118
